FAERS Safety Report 8692302 (Version 2)
Quarter: 2012Q4

REPORT INFORMATION
  Report Type: 
  Country: DE (occurrence: DE)
  Receive Date: 20120730
  Receipt Date: 20121005
  Transmission Date: 20130627
  Serious: Yes (Other)
  Sender: FDA-Public Use
  Company Number: PHHY2012DE064908

PATIENT
  Sex: Female

DRUGS (3)
  1. GILENYA [Suspect]
     Indication: RELAPSING-REMITTING MULTIPLE SCLEROSIS
     Dosage: 1 DF, QD
     Route: 048
     Dates: start: 201202, end: 2012
  2. GILENYA [Suspect]
     Dosage: 0.5 mg, QD
     Route: 048
     Dates: start: 201205
  3. CONTRACEPTIVES [Concomitant]

REACTIONS (5)
  - Lymphopenia [Unknown]
  - Subcutaneous abscess [Recovering/Resolving]
  - Onychomycosis [Recovering/Resolving]
  - Fungal skin infection [Recovering/Resolving]
  - Furuncle [Recovering/Resolving]
